FAERS Safety Report 7029702-8 (Version None)
Quarter: 2010Q4

REPORT INFORMATION
  Report Type: 
  Country: None (occurrence: None)
  Receive Date: 20101005
  Receipt Date: 20101005
  Transmission Date: 20110411
  Serious: Yes (Hospitalization)
  Sender: FDA-Public Use
  Company Number: None

PATIENT
  Sex: Male
  Weight: 88.04 kg

DRUGS (6)
  1. CYCLOPHOSPHAMIDE [Suspect]
     Dosage: 2721.6 MG
  2. DOXORUBICIN HYDROCHLORIDE [Suspect]
     Dosage: 145.32 MG
  3. ETOPOSIDE [Suspect]
     Dosage: 725.76 MG
  4. PREDNISONE [Suspect]
     Dosage: 1200 MG
  5. RITUXIMAB (MOAB C2B8 ANTI CD20, CHIMERIC) [Suspect]
     Dosage: 787.5 MG
  6. VINCRISTINE SULFATE [Suspect]
     Dosage: 2.52 MG

REACTIONS (4)
  - FEBRILE NEUTROPENIA [None]
  - HAEMOGLOBIN DECREASED [None]
  - PLATELET COUNT DECREASED [None]
  - WHITE BLOOD CELL COUNT DECREASED [None]
